FAERS Safety Report 23367136 (Version 2)
Quarter: 2024Q1

REPORT INFORMATION
  Report Type: Spontaneous
  Country: CZ (occurrence: CZ)
  Receive Date: 20240104
  Receipt Date: 20240122
  Transmission Date: 20240410
  Serious: Yes (Hospitalization, Other)
  Sender: FDA-Public Use
  Company Number: None

PATIENT
  Age: 58 Year
  Sex: Female
  Weight: 48 kg

DRUGS (3)
  1. PACLITAXEL [Suspect]
     Active Substance: PACLITAXEL
     Indication: Cervix carcinoma
     Dosage: GIVEN 5 CYCLES EVERY 3 WEEKS, TOGETHER WITH CARBOPLATIN?190 MG?CONCENTRATE FOR SOLUTION FOR INFUSION
     Route: 042
     Dates: start: 20230727, end: 20231027
  2. CARBOPLATIN [Suspect]
     Active Substance: CARBOPLATIN
     Indication: Cervix carcinoma
     Dosage: GIVEN 5 CYCLES EVERY 3 WEEK, TOGETHER WITH PACLITAXEL?CONCENTRATE FOR SOLUTION FOR INFUSION?260UG
     Route: 042
     Dates: start: 20230727, end: 20231027
  3. Algifen [Concomitant]
     Indication: Pain
     Dosage: 30-30-30 MAX. WHEN PAIN IS PRESENT

REACTIONS (2)
  - Hepatic enzyme increased [Unknown]
  - Hepatotoxicity [Unknown]

NARRATIVE: CASE EVENT DATE: 20231116
